FAERS Safety Report 7306755 (Version 2)
Quarter: 2013Q1

REPORT INFORMATION
  Report Type: Spontaneous
  Country: US (occurrence: US)
  Receive Date: 20100305
  Receipt Date: 20130111
  Transmission Date: 20140127
  Serious: Yes (Life-Threatening, Hospitalization)
  Sender: FDA-Public Use
  Company Number: US-ELI_LILLY_AND_COMPANY-US201003000576

PATIENT
  Age: 47 Year
  Sex: Male

DRUGS (10)
  1. BYETTA [Suspect]
     Dosage: UNK, UNKNOWN
     Dates: start: 200611
  2. BYETTA [Suspect]
     Dosage: 10 UG, BID
     Route: 058
  3. PLAVIX [Concomitant]
     Dosage: 75 MG, QD
  4. ASPIRIN                                 /USA/ [Concomitant]
     Dosage: 325 MG, QD
  5. LISINOPRIL                              /USA/ [Concomitant]
     Dosage: 30 MG, QD
  6. GLUCOPHAGE                              /USA/ [Concomitant]
     Dosage: 875 MG, BID
  7. GLUCOTROL [Concomitant]
     Dosage: 10 MG, QD
  8. METOPROLOL [Concomitant]
     Dosage: 25 MG, BID
     Route: 048
  9. ZOCOR [Concomitant]
     Dosage: 40 MG, EACH EVENING
  10. LEVEMIR [Concomitant]
     Dosage: 30 U, BID

REACTIONS (5)
  - Respiratory failure [Recovered/Resolved]
  - Septic shock [Recovered/Resolved]
  - Systemic inflammatory response syndrome [Recovered/Resolved]
  - Pancreatitis necrotising [Recovering/Resolving]
  - Renal failure acute [Recovering/Resolving]
